FAERS Safety Report 8547029-X (Version None)
Quarter: 2012Q3

REPORT INFORMATION
  Report Type: 
  Country: None (occurrence: None)
  Receive Date: 20120727
  Receipt Date: 20120309
  Transmission Date: 20120928
  Serious: No
  Sender: FDA-Public Use
  Company Number: US-ASTRAZENECA-2012SE16977

PATIENT
  Age: 36 Year
  Sex: Male

DRUGS (1)
  1. SEROQUEL [Suspect]
     Indication: SCHIZOPHRENIA
     Dosage: 400 MG TWO TIMES AT NIGHT
     Route: 048
     Dates: start: 20120305

REACTIONS (3)
  - PALLOR [None]
  - AGITATION [None]
  - HALLUCINATION [None]
